FAERS Safety Report 7547354-5 (Version None)
Quarter: 2011Q2

REPORT INFORMATION
  Report Type: 
  Country: None (occurrence: None)
  Receive Date: 20110614
  Receipt Date: 20110608
  Transmission Date: 20111010
  Serious: Yes (Death)
  Sender: FDA-Public Use
  Company Number: DK-ABBOTT-10P-044-0679033-00

PATIENT
  Age: 38 Year
  Sex: Male

DRUGS (11)
  1. PANTOPRAZOLE SODIUM [Concomitant]
     Indication: PRODUCT USED FOR UNKNOWN INDICATION
     Route: 042
  2. DARUNAVIR ETHANOLATE [Concomitant]
     Indication: HIV INFECTION
     Route: 048
     Dates: start: 20100910, end: 20100912
  3. ZINACEF [Concomitant]
     Indication: PRODUCT USED FOR UNKNOWN INDICATION
     Route: 042
  4. RITONAVIR [Suspect]
     Indication: HIV INFECTION
     Route: 048
     Dates: start: 20100910, end: 20100912
  5. ABACAVIR SULFATE/LAMIVUDINE [Concomitant]
     Indication: HIV INFECTION
     Route: 048
     Dates: start: 20100910, end: 20100912
  6. EFAVIREXZ/TENOFOVIR/EMTRICITABINE [Concomitant]
     Indication: HIV INFECTION
     Route: 048
     Dates: start: 20100820, end: 20100918
  7. HUMAN ALBUMINE 20% [Concomitant]
     Indication: PRODUCT USED FOR UNKNOWN INDICATION
  8. PREDNISOLONE [Concomitant]
     Indication: PRODUCT USED FOR UNKNOWN INDICATION
  9. MEROPENEM [Concomitant]
     Indication: PRODUCT USED FOR UNKNOWN INDICATION
     Route: 042
  10. POTASSIUM EXLIXIR [Concomitant]
     Indication: PRODUCT USED FOR UNKNOWN INDICATION
  11. ENTECAVIR [Concomitant]
     Indication: HEPATITIS B

REACTIONS (11)
  - PYREXIA [None]
  - BLOOD ALBUMIN DECREASED [None]
  - DIARRHOEA [None]
  - DEATH [None]
  - ALANINE AMINOTRANSFERASE INCREASED [None]
  - HEPATOSPLENOMEGALY [None]
  - CONDITION AGGRAVATED [None]
  - HEPATITIS B [None]
  - THROMBOCYTOPENIA [None]
  - ANAEMIA [None]
  - BONE MARROW FAILURE [None]
